FAERS Safety Report 8520943-7 (Version None)
Quarter: 2012Q3

REPORT INFORMATION
  Report Type: 
  Country: None (occurrence: None)
  Receive Date: 20120719
  Receipt Date: 20120710
  Transmission Date: 20120928
  Serious: Yes (Other)
  Sender: FDA-Public Use
  Company Number: GB-FRI-1000030317

PATIENT
  Sex: Female

DRUGS (2)
  1. ESCITALOPRAM [Suspect]
     Indication: ANXIETY
     Dosage: 10 MG
     Route: 048
     Dates: start: 20090501
  2. ARIPIPRAZOLE [Concomitant]

REACTIONS (3)
  - ANTIPHOSPHOLIPID ANTIBODIES [None]
  - HAEMORRHAGE [None]
  - COAGULATION TIME PROLONGED [None]
